FAERS Safety Report 12527284 (Version 1)
Quarter: 2016Q3

REPORT INFORMATION
  Report Type: Spontaneous
  Country: US (occurrence: US)
  Receive Date: 20160705
  Receipt Date: 20160705
  Transmission Date: 20161109
  Serious: No
  Sender: FDA-Public Use
  Company Number: US-009507513-1606USA009964

PATIENT
  Sex: Male

DRUGS (4)
  1. COZAAR [Suspect]
     Active Substance: LOSARTAN POTASSIUM
     Indication: PRODUCT USED FOR UNKNOWN INDICATION
     Dosage: 25 MG, 1/2 TAB, BID
     Route: 048
  2. TIKOSYN [Suspect]
     Active Substance: DOFETILIDE
     Indication: PRODUCT USED FOR UNKNOWN INDICATION
     Dosage: 250 MICROGRAM, QD
     Route: 048
     Dates: start: 20160408
  3. TIKOSYN [Suspect]
     Active Substance: DOFETILIDE
     Dosage: 250 MCG, BID
     Route: 048
     Dates: start: 20160608
  4. TIKOSYN [Suspect]
     Active Substance: DOFETILIDE
     Dosage: 250 MCG, QD
     Route: 048

REACTIONS (1)
  - Fatigue [Unknown]
